FAERS Safety Report 6794688-8 (Version None)
Quarter: 2010Q2

REPORT INFORMATION
  Report Type: 
  Country: None (occurrence: None)
  Receive Date: 20100625
  Receipt Date: 20100618
  Transmission Date: 20101027
  Serious: Yes (Hospitalization)
  Sender: FDA-Public Use
  Company Number: BR-BAYER-201015894LA

PATIENT
  Age: 33 Year
  Sex: Female
  Weight: 59 kg

DRUGS (2)
  1. YAZ [Suspect]
     Indication: CONTRACEPTION
     Dosage: STARTED YAZ TREATMENT AFTER MENSTRUAL BLEEDING FINISH, SHE TOOK ABOUT 20 PILLS
     Route: 048
     Dates: start: 20100301
  2. H1N1 VACCINE [Concomitant]
     Indication: ANTIVIRAL PROPHYLAXIS

REACTIONS (6)
  - ASTHENIA [None]
  - DIPLOPIA [None]
  - HEADACHE [None]
  - HYPOAESTHESIA [None]
  - SPEECH DISORDER [None]
  - VOMITING [None]
